FAERS Safety Report 18307215 (Version 5)
Quarter: 2021Q3

REPORT INFORMATION
  Report Type: Report from Study
  Country: BR (occurrence: BR)
  Receive Date: 20200924
  Receipt Date: 20210902
  Transmission Date: 20211014
  Serious: Yes (Other)
  Sender: FDA-Public Use
  Company Number: NVSC2020BR256472

PATIENT
  Age: 49 Year
  Sex: Female

DRUGS (5)
  1. KISQALI [Suspect]
     Active Substance: RIBOCICLIB
     Indication: BREAST CANCER FEMALE
     Dosage: UNK
     Route: 065
     Dates: start: 20190313
  2. KISQALI [Suspect]
     Active Substance: RIBOCICLIB
     Dosage: UNK
     Route: 065
     Dates: end: 202107
  3. LETROZOLE. [Suspect]
     Active Substance: LETROZOLE
     Indication: BREAST CANCER FEMALE
     Dosage: UNK
     Route: 065
     Dates: start: 20190313
  4. LETROZOLE. [Suspect]
     Active Substance: LETROZOLE
     Dosage: UNK
     Route: 065
     Dates: start: 202107
  5. KISQALI [Suspect]
     Active Substance: RIBOCICLIB
     Dosage: (21 DAYS CYCLE AND 7 DAYS PAUSE)UNK
     Route: 065

REACTIONS (20)
  - Anxiety [Unknown]
  - Abdominal pain upper [Recovered/Resolved]
  - Drug ineffective [Unknown]
  - Pain in extremity [Unknown]
  - Weight increased [Unknown]
  - White blood cell count decreased [Not Recovered/Not Resolved]
  - Decreased immune responsiveness [Not Recovered/Not Resolved]
  - Inflammation [Unknown]
  - Neoplasm [Unknown]
  - Arthralgia [Unknown]
  - Radiation skin injury [Unknown]
  - Fatigue [Not Recovered/Not Resolved]
  - Metastases to bone [Unknown]
  - Nervousness [Unknown]
  - Carcinoembryonic antigen increased [Recovering/Resolving]
  - Headache [Recovered/Resolved]
  - Discomfort [Recovered/Resolved]
  - Insomnia [Unknown]
  - Malaise [Unknown]
  - Neutrophil count decreased [Not Recovered/Not Resolved]

NARRATIVE: CASE EVENT DATE: 20200313
